FAERS Safety Report 23161141 (Version 1)
Quarter: 2023Q4

REPORT INFORMATION
  Report Type: Spontaneous
  Country: None (occurrence: ES)
  Receive Date: 20231108
  Receipt Date: 20231108
  Transmission Date: 20240109
  Serious: Yes (Life-Threatening, Hospitalization)
  Sender: FDA-Public Use
  Company Number: ES-Air Products and Chemicals, Inc. -2148009

PATIENT
  Age: 47 Year
  Sex: Male

DRUGS (1)
  1. OXYGEN [Suspect]
     Active Substance: OXYGEN

REACTIONS (5)
  - Hyperbaric oxygen therapy [None]
  - Respiratory arrest [None]
  - Paraesthesia [None]
  - Seizure [None]
  - Hyperoxia [None]
